FAERS Safety Report 6935675-6 (Version None)
Quarter: 2010Q3

REPORT INFORMATION
  Report Type: 
  Country: None (occurrence: None)
  Receive Date: 20100817
  Receipt Date: 20100806
  Transmission Date: 20110219
  Serious: Yes (Hospitalization, Other)
  Sender: FDA-Public Use
  Company Number: TCI2010A02785

PATIENT
  Age: 56 Year
  Sex: Female

DRUGS (9)
  1. LANSOPRAZOLE [Suspect]
     Indication: ABDOMINAL PAIN UPPER
     Dosage: 15 MG (15 MG,1 IN 1 D),PER ORAL
     Route: 048
     Dates: start: 20100513, end: 20100713
  2. LANSOPRAZOLE [Suspect]
     Indication: PROPHYLAXIS
     Dosage: 15 MG (15 MG,1 IN 1 D),PER ORAL
     Route: 048
     Dates: start: 20100513, end: 20100713
  3. GABAPENTIN [Suspect]
     Indication: ARTHRALGIA
     Dosage: 600 MG (200 MG,3 IN 1 D) PER ORAL
     Route: 048
     Dates: start: 20100501, end: 20100713
  4. ALPROSTADIL [Suspect]
     Indication: ARTHRALGIA
     Dosage: (1 IN 1 WK) INTRAVENOUS DRIP
     Route: 041
     Dates: start: 20100501, end: 20100713
  5. CELECOXIB [Suspect]
     Indication: ARTHRALGIA
     Dosage: 400 MG (200MG,2 IN 1 D) PER ORAL
     Route: 048
     Dates: start: 20100501, end: 20100713
  6. DIAZEPAM [Concomitant]
  7. URSO 250 [Concomitant]
  8. LIPITOR [Concomitant]
  9. LOSARTAN POTASSIUM [Concomitant]

REACTIONS (6)
  - AUTOIMMUNE THROMBOCYTOPENIA [None]
  - GENITAL HAEMORRHAGE [None]
  - HAEMORRHAGE SUBCUTANEOUS [None]
  - IDIOPATHIC THROMBOCYTOPENIC PURPURA [None]
  - PLATELET COUNT DECREASED [None]
  - SYSTEMIC LUPUS ERYTHEMATOSUS [None]
